FAERS Safety Report 8566084-4 (Version None)
Quarter: 2012Q3

REPORT INFORMATION
  Report Type: 
  Country: None (occurrence: None)
  Receive Date: 20120803
  Receipt Date: 20110824
  Transmission Date: 20120928
  Serious: No
  Sender: FDA-Public Use
  Company Number: US-ABBOTT-11P-163-0849340-00

PATIENT
  Sex: Male
  Weight: 85.352 kg

DRUGS (5)
  1. PERCOCET [Concomitant]
     Indication: NERVOUS SYSTEM DISORDER
  2. LIVALO [Concomitant]
     Indication: LIPIDS
  3. NIASPAN [Suspect]
     Indication: LIPIDS
     Dosage: 500 MG
  4. LYRICA [Concomitant]
     Indication: NERVE INJURY
  5. TENEX [Concomitant]
     Indication: AFFECTIVE DISORDER

REACTIONS (5)
  - PRURITUS [None]
  - FLUSHING [None]
  - SKIN BURNING SENSATION [None]
  - PALPITATIONS [None]
  - RETCHING [None]
